FAERS Safety Report 9681681 (Version 3)
Quarter: 2015Q2

REPORT INFORMATION
  Report Type: Spontaneous
  Country: US (occurrence: US)
  Receive Date: 20131111
  Receipt Date: 20150602
  Transmission Date: 20150821
  Serious: Yes (Hospitalization)
  Sender: FDA-Public Use
  Company Number: US-NOVEN-13US008025

PATIENT
  Age: 12 Year
  Sex: Female

DRUGS (1)
  1. DAYTRANA [Suspect]
     Active Substance: METHYLPHENIDATE
     Indication: ATTENTION DEFICIT/HYPERACTIVITY DISORDER
     Dosage: 10 MG, QD
     Route: 062
     Dates: start: 20130907, end: 20130909

REACTIONS (5)
  - Dyspnoea [Recovered/Resolved]
  - Atrioventricular block second degree [Unknown]
  - Palpitations [Recovered/Resolved]
  - Chest pain [Recovered/Resolved]
  - Application site erythema [Recovered/Resolved]

NARRATIVE: CASE EVENT DATE: 201309
